FAERS Safety Report 14598263 (Version 1)
Quarter: 2018Q1

REPORT INFORMATION
  Report Type: Spontaneous
  Country: US (occurrence: US)
  Receive Date: 20180302
  Receipt Date: 20180302
  Transmission Date: 20180509
  Serious: Yes (Other)
  Sender: FDA-Public Use
  Company Number: None

PATIENT
  Age: 47 Year
  Sex: Female

DRUGS (12)
  1. VENLAFAXINE [Concomitant]
     Active Substance: VENLAFAXINE HYDROCHLORIDE
  2. PREDNISONE. [Concomitant]
     Active Substance: PREDNISONE
  3. DEXILANT [Concomitant]
     Active Substance: DEXLANSOPRAZOLE
  4. CIMZIA [Suspect]
     Active Substance: CERTOLIZUMAB PEGOL
     Indication: RHEUMATOID ARTHRITIS
     Route: 058
     Dates: start: 20160812
  5. TOPAMAX [Concomitant]
     Active Substance: TOPIRAMATE
  6. VITAMIN B12 [Concomitant]
     Active Substance: CYANOCOBALAMIN
  7. ZEGERID [Concomitant]
     Active Substance: OMEPRAZOLE\SODIUM BICARBONATE
  8. OMEPRAZOLE. [Concomitant]
     Active Substance: OMEPRAZOLE
  9. VITAMIN D [Concomitant]
     Active Substance: CHOLECALCIFEROL
  10. LISIOPRIL [Concomitant]
  11. HYDROCONE-ACETAMINOPHEN 10-325 [Concomitant]
     Active Substance: ACETAMINOPHEN\HYDROCODONE BITARTRATE
  12. REMICADE [Concomitant]
     Active Substance: INFLIXIMAB

REACTIONS (1)
  - Condition aggravated [None]
